FAERS Safety Report 23345228 (Version 1)
Quarter: 2023Q4

REPORT INFORMATION
  Report Type: Spontaneous
  Country: FR (occurrence: FR)
  Receive Date: 20231228
  Receipt Date: 20231228
  Transmission Date: 20240109
  Serious: Yes (Other)
  Sender: FDA-Public Use
  Company Number: None

PATIENT
  Age: 54 Year
  Sex: Male

DRUGS (1)
  1. RINVOQ [Suspect]
     Active Substance: UPADACITINIB
     Indication: Colitis
     Dosage: EXTENDED RELEASE?STRENGTH- 15 MG
     Route: 050
     Dates: start: 20230101

REACTIONS (1)
  - Retinal vein occlusion [Not Recovered/Not Resolved]

NARRATIVE: CASE EVENT DATE: 20230308
